FAERS Safety Report 6271340-9 (Version None)
Quarter: 2009Q3

REPORT INFORMATION
  Report Type: 
  Country: None (occurrence: None)
  Receive Date: 20090717
  Receipt Date: 20090708
  Transmission Date: 20100115
  Serious: Yes (Hospitalization)
  Sender: FDA-Public Use
  Company Number: US-KINGPHARMUSA00001-K200900804

PATIENT
  Age: 55 Year
  Sex: Female

DRUGS (11)
  1. PENICILLIN G PROCAINE [Suspect]
     Indication: STREPTOCOCCAL INFECTION
     Dosage: UNK
     Dates: start: 20070101
  2. ALLOPURINOL [Suspect]
     Indication: GOUT
     Dosage: 100 MG, UNK
     Route: 048
     Dates: start: 20070310, end: 20070401
  3. BENICAR [Concomitant]
  4. DARVOCET-N 100 [Concomitant]
     Dosage: 100 UNK, UNK
  5. EFFEXOR XR [Concomitant]
     Dosage: 50 MG, UNK
  6. FOLIC ACID [Concomitant]
  7. METHADONE HCL [Concomitant]
  8. NORVASC [Concomitant]
  9. PROCRIT [Concomitant]
     Dosage: 2000 U/ML, UNK
  10. AMOXICILLIN [Concomitant]
  11. TYLENOL (CAPLET) [Concomitant]

REACTIONS (12)
  - DRY SKIN [None]
  - ERYTHEMA MULTIFORME [None]
  - LIVER FUNCTION TEST ABNORMAL [None]
  - NAUSEA [None]
  - PHARYNGEAL ERYTHEMA [None]
  - RASH GENERALISED [None]
  - RASH PRURITIC [None]
  - RED MAN SYNDROME [None]
  - RENAL FAILURE ACUTE [None]
  - SKIN EXFOLIATION [None]
  - SKIN TIGHTNESS [None]
  - STEVENS-JOHNSON SYNDROME [None]
